FAERS Safety Report 10592699 (Version 2)
Quarter: 2014Q4

REPORT INFORMATION
  Report Type: Spontaneous
  Country: US (occurrence: None)
  Receive Date: 20141117
  Receipt Date: 20141124
  Transmission Date: 20150529
  Serious: Yes (Other)
  Sender: FDA-Public Use
  Company Number: 20140726

PATIENT
  Age: 42 Year
  Sex: Female

DRUGS (1)
  1. VENOFER [Suspect]
     Active Substance: IRON SUCROSE
     Indication: ANAEMIA
     Dosage: 3 DOSES
     Route: 042
     Dates: start: 20141027, end: 20141104

REACTIONS (12)
  - Loss of consciousness [None]
  - Vomiting [None]
  - Musculoskeletal stiffness [None]
  - Pruritus [None]
  - Dizziness [None]
  - Abdominal discomfort [None]
  - Off label use [None]
  - Hypersensitivity [None]
  - Arthralgia [None]
  - Rash macular [None]
  - Headache [None]
  - Movement disorder [None]

NARRATIVE: CASE EVENT DATE: 20141027
